FAERS Safety Report 9313065 (Version 2)
Quarter: 2013Q3

REPORT INFORMATION
  Report Type: Spontaneous
  Country: US (occurrence: US)
  Receive Date: 20130528
  Receipt Date: 20130828
  Transmission Date: 20140515
  Serious: No
  Sender: FDA-Public Use
  Company Number: US-ABBOTT-13P-163-1071636-00

PATIENT
  Age: 74 Year
  Sex: Male
  Weight: 73.55 kg

DRUGS (7)
  1. ANDROGEL [Suspect]
     Indication: BLOOD TESTOSTERONE DECREASED
     Dosage: 3 PUMPS
     Route: 061
     Dates: start: 201210, end: 201212
  2. ANDROGEL [Suspect]
     Dosage: 4 PUMPS
     Route: 061
     Dates: start: 201212, end: 201301
  3. ANDROGEL [Suspect]
     Dosage: 5 PUMPS
     Route: 061
     Dates: start: 201301, end: 201301
  4. CRESTOR [Concomitant]
     Indication: BLOOD CHOLESTEROL INCREASED
  5. ASPIRIN [Concomitant]
     Indication: PRODUCT USED FOR UNKNOWN INDICATION
  6. FINASTERIDE [Concomitant]
     Indication: PROSTATIC DISORDER
  7. METOPROLOL [Concomitant]
     Indication: HYPERTENSION

REACTIONS (3)
  - Musculoskeletal pain [Recovered/Resolved]
  - Blood testosterone decreased [Not Recovered/Not Resolved]
  - Drug ineffective [Unknown]
